FAERS Safety Report 6106904-6 (Version None)
Quarter: 2009Q1

REPORT INFORMATION
  Report Type: 
  Country: None (occurrence: None)
  Receive Date: 20090303
  Receipt Date: 20090219
  Transmission Date: 20090719
  Serious: Yes (Life-Threatening, Hospitalization, Other)
  Sender: FDA-Public Use
  Company Number: 2009AP000616

PATIENT
  Age: 69 Year
  Sex: Male

DRUGS (12)
  1. RISPERIDONE [Suspect]
     Indication: AGITATION
     Dosage: 2.5 MG; PO; QD
     Route: 048
     Dates: start: 20090108, end: 20090208
  2. RISPERIDONE [Suspect]
     Indication: CONFUSIONAL STATE
     Dosage: 2.5 MG; PO; QD
     Route: 048
     Dates: start: 20090108, end: 20090208
  3. DOMPERIDONE (DOMPERIDONE) [Concomitant]
  4. ALGINIC ACID (ALGINIC ACID) [Concomitant]
  5. ALUMINIUM HYDROXIDE GEL (ALUMINIUM HYDROXIDE GEL) [Concomitant]
  6. ALUMINUM HYDROXIDE TAB [Concomitant]
  7. CALCIUM CARBONATE (CALCIUM CARBONATE) [Concomitant]
  8. MAGNESIUM TRISILICATE (MAGNESIUM TRISILICATE) [Concomitant]
  9. POTASSIUM BICARBONATE (POTASSIUM BICARBONATE) [Concomitant]
  10. SODIUM ALGINATE (SODIUM ALGINATE) [Concomitant]
  11. SODIUM BICARBONATE IN PLASTIC CONTAINER [Concomitant]
  12. LANSOPRAZOLE [Concomitant]

REACTIONS (1)
  - INSULINOMA [None]
